FAERS Safety Report 9103802 (Version 1)
Quarter: 2013Q1

REPORT INFORMATION
  Report Type: Spontaneous
  Country: FR (occurrence: FR)
  Receive Date: 20130219
  Receipt Date: 20130219
  Transmission Date: 20140127
  Serious: Yes (Hospitalization)
  Sender: FDA-Public Use
  Company Number: FR-UCBSA-078244

PATIENT
  Age: 15 Year
  Sex: Female

DRUGS (2)
  1. XYZALL [Suspect]
     Dosage: DAILY DOSE: 2 UNITS
     Route: 048
     Dates: start: 20121001, end: 20121001
  2. PARACETAMOL [Suspect]
     Dosage: DAILY DOSE: 15 UNITS, 7500MG
     Route: 048
     Dates: start: 20121001, end: 20121001

REACTIONS (1)
  - Toxicity to various agents [Recovered/Resolved]
